FAERS Safety Report 20202427 (Version 1)
Quarter: 2021Q4

REPORT INFORMATION
  Report Type: Spontaneous
  Country: CA (occurrence: None)
  Receive Date: 20211217
  Receipt Date: 20211217
  Transmission Date: 20220303
  Serious: Yes (Hospitalization)
  Sender: FDA-Public Use
  Company Number: CA-ROCHE-2975147

PATIENT
  Age: 70 Year
  Sex: Male
  Weight: 68 kg

DRUGS (8)
  1. ESBRIET [Suspect]
     Active Substance: PIRFENIDONE
     Indication: Idiopathic pulmonary fibrosis
     Route: 048
  2. ESBRIET [Suspect]
     Active Substance: PIRFENIDONE
     Route: 048
  3. ESBRIET [Suspect]
     Active Substance: PIRFENIDONE
     Route: 048
  4. LOSEC [Suspect]
     Active Substance: OMEPRAZOLE
     Indication: Product used for unknown indication
     Route: 065
  5. ASPIRIN [Concomitant]
     Active Substance: ASPIRIN
     Route: 065
  6. EZETIMIBE [Concomitant]
     Active Substance: EZETIMIBE
  7. LIPITOR [Concomitant]
     Active Substance: ATORVASTATIN CALCIUM
     Route: 065
  8. VENTOLIN [Concomitant]
     Active Substance: ALBUTEROL SULFATE
     Route: 055

REACTIONS (12)
  - Cough [Unknown]
  - Decreased appetite [Unknown]
  - Drug ineffective [Unknown]
  - Drug interaction [Unknown]
  - Dyspepsia [Unknown]
  - FEV1/FVC ratio decreased [Unknown]
  - Fatigue [Unknown]
  - Lethargy [Unknown]
  - Pneumonia [Unknown]
  - Red blood cell count increased [Unknown]
  - Thrombosis [Unknown]
  - Weight decreased [Unknown]
